FAERS Safety Report 9010676 (Version 3)
Quarter: 2013Q2

REPORT INFORMATION
  Report Type: Report from Study
  Country: US (occurrence: US)
  Receive Date: 20130111
  Receipt Date: 20130402
  Transmission Date: 20140414
  Serious: Yes (Hospitalization)
  Sender: FDA-Public Use
  Company Number: US-ACTELION-A-US2013-77137

PATIENT
  Age: 67 Year
  Sex: Female

DRUGS (3)
  1. VELETRI [Suspect]
     Indication: PULMONARY ARTERIAL HYPERTENSION
     Dosage: 30 NG/KG, PER MIN
     Route: 042
     Dates: start: 20120320
  2. ASPIRIN [Concomitant]
  3. COUMADIN [Concomitant]

REACTIONS (6)
  - Pneumonia [Unknown]
  - Respiratory tract inflammation [Unknown]
  - Cold sweat [Unknown]
  - Dyspnoea [Unknown]
  - Nasopharyngitis [Unknown]
  - Catheter site related reaction [Unknown]
